FAERS Safety Report 20750833 (Version 1)
Quarter: 2022Q2

REPORT INFORMATION
  Report Type: Spontaneous
  Country: PT (occurrence: PT)
  Receive Date: 20220426
  Receipt Date: 20220426
  Transmission Date: 20220720
  Serious: Yes (Other)
  Sender: FDA-Public Use
  Company Number: PT-GILEAD-2022-0578756

PATIENT
  Age: 71 Year
  Sex: Female

DRUGS (8)
  1. VEKLURY [Suspect]
     Active Substance: REMDESIVIR
     Indication: COVID-19
     Dosage: UNK
     Route: 065
  2. METHYLPREDNISOLONE [Concomitant]
     Active Substance: METHYLPREDNISOLONE
  3. LAPINE T-LYMPHOCYTE IMMUNE GLOBULIN [Concomitant]
     Active Substance: LAPINE T-LYMPHOCYTE IMMUNE GLOBULIN
  4. IV-GLOBULIN [Concomitant]
     Route: 042
  5. MYCOPHENOLATE MOFETIL [Concomitant]
     Active Substance: MYCOPHENOLATE MOFETIL
     Dosage: 500 MG, BID
  6. DEXAMETHASONE [Concomitant]
     Active Substance: DEXAMETHASONE
  7. RITUXIMAB [Concomitant]
     Active Substance: RITUXIMAB
     Dosage: 600 MG
  8. TACROLIMUS [Concomitant]
     Active Substance: TACROLIMUS

REACTIONS (1)
  - Hypoxia [Unknown]
